FAERS Safety Report 10471486 (Version 1)
Quarter: 2014Q3

REPORT INFORMATION
  Report Type: Spontaneous
  Country: FR (occurrence: FR)
  Receive Date: 20140923
  Receipt Date: 20140923
  Transmission Date: 20150326
  Serious: Yes (Hospitalization)
  Sender: FDA-Public Use
  Company Number: FR-PFIZER INC-2014257869

PATIENT
  Age: 69 Year
  Sex: Male

DRUGS (16)
  1. BEVITIN [Concomitant]
  2. MOVICOL [Concomitant]
     Active Substance: POLYETHYLENE GLYCOL 3350\POTASSIUM CHLORIDE\SODIUM BICARBONATE\SODIUM CHLORIDE
  3. DEROXAT [Concomitant]
     Active Substance: PAROXETINE HYDROCHLORIDE
  4. DEXERYL ^PIERRE FABRE^ [Concomitant]
  5. TEMERIT [Concomitant]
     Active Substance: NEBIVOLOL
  6. RIFAMPICIN [Concomitant]
     Active Substance: RIFAMPIN
  7. LASILIX [Concomitant]
     Active Substance: FUROSEMIDE
  8. PERINDOPRIL [Concomitant]
     Active Substance: PERINDOPRIL
  9. METFORMIN [Concomitant]
     Active Substance: METFORMIN HYDROCHLORIDE
  10. ECONAZOLE [Concomitant]
     Active Substance: ECONAZOLE
  11. LYRICA [Suspect]
     Active Substance: PREGABALIN
     Indication: NEURALGIA
     Dosage: UNK
     Route: 048
     Dates: start: 201311, end: 201311
  12. VALIUM [Concomitant]
     Active Substance: DIAZEPAM
  13. ZOLPIDEM [Concomitant]
     Active Substance: ZOLPIDEM\ZOLPIDEM TARTRATE
  14. PRAVASTATIN [Concomitant]
     Active Substance: PRAVASTATIN\PRAVASTATIN SODIUM
  15. MORPHINE [Concomitant]
     Active Substance: MORPHINE
     Indication: SPINAL PAIN
  16. ORBENIN [Concomitant]
     Active Substance: CLOXACILLIN SODIUM
     Dosage: UNK

REACTIONS (1)
  - Hypokalaemia [Recovered/Resolved]

NARRATIVE: CASE EVENT DATE: 20131112
